FAERS Safety Report 17688245 (Version 2)
Quarter: 2020Q2

REPORT INFORMATION
  Report Type: Spontaneous
  Country: CN (occurrence: CN)
  Receive Date: 20200421
  Receipt Date: 20200501
  Transmission Date: 20200714
  Serious: Yes (Other)
  Sender: FDA-Public Use
  Company Number: NVSC2020CN106057

PATIENT
  Age: 79 Year
  Sex: Male

DRUGS (1)
  1. DIOVAN [Suspect]
     Active Substance: VALSARTAN
     Indication: PRODUCT USED FOR UNKNOWN INDICATION
     Dosage: 1 PILL
     Route: 048

REACTIONS (5)
  - Arrhythmia [Recovering/Resolving]
  - Discomfort [Recovered/Resolved]
  - Blood pressure systolic abnormal [Recovering/Resolving]
  - Headache [Recovered/Resolved]
  - Palpitations [Recovered/Resolved]
